FAERS Safety Report 20066258 (Version 1)
Quarter: 2021Q4

REPORT INFORMATION
  Report Type: Spontaneous
  Country: RO (occurrence: RO)
  Receive Date: 20211114
  Receipt Date: 20211114
  Transmission Date: 20220303
  Serious: Yes (Hospitalization, Other)
  Sender: FDA-Public Use
  Company Number: RO-RECORDATI-2021004422

PATIENT
  Age: 72 Year
  Sex: Male

DRUGS (2)
  1. METOPROLOL [Suspect]
     Active Substance: METOPROLOL
     Indication: Product used for unknown indication
     Dosage: 50 MILLIGRAM, ONCE A DAY (50 MILLIGRAM, QD)
     Route: 065
  2. PERINDOPRIL [Suspect]
     Active Substance: PERINDOPRIL
     Indication: Product used for unknown indication
     Dosage: 10 MILLIGRAM, ONCE A DAY(10 MILLIGRAM, QD)
     Route: 065

REACTIONS (9)
  - Splenic infarction [Recovered/Resolved]
  - Renal ischaemia [Recovered/Resolved]
  - Embolic stroke [Recovered/Resolved]
  - Cerebral infarction [Recovered/Resolved]
  - Atrial fibrillation [Recovered/Resolved]
  - Renal infarct [Recovered/Resolved]
  - Therapy non-responder [Recovered/Resolved]
  - Intestinal infarction [Recovered/Resolved]
  - Hypertension [Unknown]
